FAERS Safety Report 11539636 (Version 1)
Quarter: 2015Q3

REPORT INFORMATION
  Report Type: Spontaneous
  Country: US (occurrence: US)
  Receive Date: 20150923
  Receipt Date: 20150923
  Transmission Date: 20151125
  Serious: Yes (Hospitalization, Other)
  Sender: FDA-Public Use
  Company Number: US-VIIV HEALTHCARE LIMITED-US2015134370

PATIENT
  Sex: Male

DRUGS (4)
  1. COREG [Concomitant]
     Active Substance: CARVEDILOL
  2. COMBIVIR [Suspect]
     Active Substance: LAMIVUDINE\ZIDOVUDINE
     Indication: HIV INFECTION
     Dosage: 1 DF, BID
     Route: 048
     Dates: end: 20150731
  3. REYATAZ [Concomitant]
     Active Substance: ATAZANAVIR SULFATE
  4. LISINOPRIL. [Concomitant]
     Active Substance: LISINOPRIL

REACTIONS (7)
  - Cardiac failure congestive [Unknown]
  - Decreased activity [Unknown]
  - Dyspnoea [Unknown]
  - Hepatic enzyme increased [Recovering/Resolving]
  - Swelling [Recovered/Resolved]
  - Blood bilirubin increased [Unknown]
  - Aortic stenosis [Recovered/Resolved]
